FAERS Safety Report 7738746-X (Version None)
Quarter: 2011Q3

REPORT INFORMATION
  Report Type: 
  Country: None (occurrence: None)
  Receive Date: 20110908
  Receipt Date: 20110906
  Transmission Date: 20111222
  Serious: No
  Sender: FDA-Public Use
  Company Number: US-PFIZER INC-2011209083

PATIENT
  Sex: Female
  Weight: 65.7 kg

DRUGS (1)
  1. ADVIL LIQUI-GELS [Suspect]
     Indication: ARTHRITIS
     Dosage: UNK, 1X/DAY
     Route: 048
     Dates: start: 20110901, end: 20110906

REACTIONS (1)
  - DRUG INEFFECTIVE [None]
